FAERS Safety Report 14066921 (Version 1)
Quarter: 2017Q4

REPORT INFORMATION
  Report Type: Spontaneous
  Country: US (occurrence: US)
  Receive Date: 20171010
  Receipt Date: 20171010
  Transmission Date: 20180321
  Serious: Yes (Hospitalization, Other)
  Sender: FDA-Public Use
  Company Number: US-ZYDUS-016954

PATIENT
  Age: 42 Year
  Sex: Male
  Weight: 65 kg

DRUGS (37)
  1. TREPROSTINIL/TREPROSTINIL SODIUM [Concomitant]
     Indication: PULMONARY HYPERTENSION
     Dosage: 5 NG/KG/MINUTE VIA AMBULATORY PUMP
     Route: 042
  2. TREPROSTINIL/TREPROSTINIL SODIUM [Concomitant]
     Indication: PULMONARY HYPERTENSION
     Dosage: 12.5 NG/KG/MINUTE VIA AMBULATORY PUMP
     Route: 042
  3. TREPROSTINIL/TREPROSTINIL SODIUM [Concomitant]
     Indication: PULMONARY HYPERTENSION
     Dosage: 15 NG/KG/MINUTE VIA AMBULATORY PUMP
     Route: 042
  4. TREPROSTINIL/TREPROSTINIL SODIUM [Concomitant]
     Indication: PULMONARY HYPERTENSION
     Route: 048
  5. SELEXIPAG [Concomitant]
     Active Substance: SELEXIPAG
     Indication: PULMONARY HYPERTENSION
     Dosage: 1000 MCG IN AM AND 1200 MCG IN PM
     Route: 048
  6. TREPROSTINIL/TREPROSTINIL SODIUM [Concomitant]
     Indication: PULMONARY HYPERTENSION
     Dosage: 14 NG/KG/MINUTE VIA AMBULATORY PUMP
     Route: 042
  7. TREPROSTINIL/TREPROSTINIL SODIUM [Concomitant]
     Indication: PULMONARY HYPERTENSION
     Dosage: 2 NG/KG/MINUTE VIA AMBULATORY PUMP
     Route: 042
  8. TREPROSTINIL/TREPROSTINIL SODIUM [Concomitant]
     Indication: PULMONARY HYPERTENSION
     Dosage: 3 NG/KG/MINUTE VIA AMBULATORY PUMP
     Route: 042
  9. TREPROSTINIL/TREPROSTINIL SODIUM [Concomitant]
     Indication: PULMONARY HYPERTENSION
     Dosage: 8 NG/KG/MINUTE VIA AMBULATORY PUMP
     Route: 042
  10. TREPROSTINIL/TREPROSTINIL SODIUM [Concomitant]
     Indication: PULMONARY HYPERTENSION
     Dosage: 15 NG/KG/MINUTE VIA AMBULATORY PUMP
     Route: 042
  11. TREPROSTINIL/TREPROSTINIL SODIUM [Concomitant]
     Indication: PULMONARY HYPERTENSION
     Dosage: 5 NG/KG/MINUTE VIA AMBULATORY PUMP
     Route: 042
  12. SELEXIPAG [Concomitant]
     Active Substance: SELEXIPAG
     Indication: PULMONARY HYPERTENSION
     Dosage: 600 MCG IN AM AND 400 MCG IN PM
     Route: 048
  13. TREPROSTINIL/TREPROSTINIL SODIUM [Concomitant]
     Indication: PULMONARY HYPERTENSION
     Route: 048
  14. SELEXIPAG [Concomitant]
     Active Substance: SELEXIPAG
     Indication: PULMONARY HYPERTENSION
     Route: 048
  15. TREPROSTINIL/TREPROSTINIL SODIUM [Concomitant]
     Indication: PULMONARY HYPERTENSION
     Dosage: 20 NG/KG/MINUTE VIA AMBULATORY PUMP
     Route: 042
  16. TREPROSTINIL/TREPROSTINIL SODIUM [Concomitant]
     Indication: PULMONARY HYPERTENSION
     Route: 048
  17. RIOCIGUAT [Concomitant]
     Active Substance: RIOCIGUAT
     Indication: PULMONARY HYPERTENSION
     Route: 065
  18. SELEXIPAG [Concomitant]
     Active Substance: SELEXIPAG
     Indication: PULMONARY HYPERTENSION
     Route: 048
  19. SELEXIPAG [Concomitant]
     Active Substance: SELEXIPAG
     Indication: PULMONARY HYPERTENSION
     Dosage: 600 MCG IN AM AND 800 MCG IN PM
     Route: 048
  20. SELEXIPAG [Concomitant]
     Active Substance: SELEXIPAG
     Indication: PULMONARY HYPERTENSION
     Dosage: 1000 MCG IN AM AND 800 MCG IN PM
     Route: 048
  21. TORASEMIDE [Concomitant]
     Active Substance: TORSEMIDE
     Indication: PRODUCT USED FOR UNKNOWN INDICATION
     Route: 065
  22. TREPROSTINIL/TREPROSTINIL SODIUM [Concomitant]
     Indication: PULMONARY HYPERTENSION
     Dosage: 17 NG/KG/MINUTE VIA AMBULATORY PUMP
     Route: 042
  23. TREPROSTINIL/TREPROSTINIL SODIUM [Concomitant]
     Indication: PULMONARY HYPERTENSION
     Dosage: 17.5 NG/KG/MINUTE VIA AMBULATORY PUMP
     Route: 042
  24. TREPROSTINIL/TREPROSTINIL SODIUM [Concomitant]
     Indication: PULMONARY HYPERTENSION
     Route: 048
  25. SELEXIPAG [Concomitant]
     Active Substance: SELEXIPAG
     Indication: PULMONARY HYPERTENSION
     Dosage: 1400 MCG IN AM AND 1600 MCG IN PM
     Route: 048
  26. SELEXIPAG [Concomitant]
     Active Substance: SELEXIPAG
     Indication: PULMONARY HYPERTENSION
     Route: 048
  27. WARFARIN [Suspect]
     Active Substance: WARFARIN
     Indication: PRODUCT USED FOR UNKNOWN INDICATION
     Route: 065
  28. SELEXIPAG [Concomitant]
     Active Substance: SELEXIPAG
     Indication: PULMONARY HYPERTENSION
     Dosage: 1400 MCG IN AM AND 1200 MCG IN PM
     Route: 048
  29. POTASSIUM [Concomitant]
     Active Substance: POTASSIUM
     Indication: PRODUCT USED FOR UNKNOWN INDICATION
     Route: 065
  30. TREPROSTINIL/TREPROSTINIL SODIUM [Concomitant]
     Indication: PULMONARY HYPERTENSION
     Dosage: 11 NG/KG/MINUTE VIA AMBULATORY PUMP
     Route: 042
  31. TREPROSTINIL/TREPROSTINIL SODIUM [Concomitant]
     Indication: PULMONARY HYPERTENSION
     Dosage: 10 NG/KG/MINUTE VIA AMBULATORY PUMP
     Route: 042
  32. TREPROSTINIL/TREPROSTINIL SODIUM [Concomitant]
     Indication: PULMONARY HYPERTENSION
     Dosage: 10 NG/KG/MINUTE VIA AMBULATORY PUMP
     Route: 042
  33. TREPROSTINIL/TREPROSTINIL SODIUM [Concomitant]
     Indication: PULMONARY HYPERTENSION
     Route: 048
  34. SPIRONOLACTONE. [Concomitant]
     Active Substance: SPIRONOLACTONE
     Indication: PRODUCT USED FOR UNKNOWN INDICATION
     Route: 065
  35. TREPROSTINIL/TREPROSTINIL SODIUM [Concomitant]
     Indication: PULMONARY HYPERTENSION
     Dosage: 8 NG/KG/MINUTE VIA AMBULATORY PUMP
     Route: 042
  36. TREPROSTINIL/TREPROSTINIL SODIUM [Concomitant]
     Indication: PULMONARY HYPERTENSION
     Dosage: 5.5 NG/KG/MINUTE VIA AMBULATORY PUMP
     Route: 042
  37. SELEXIPAG [Concomitant]
     Active Substance: SELEXIPAG
     Indication: PULMONARY HYPERTENSION
     Route: 048

REACTIONS (5)
  - Hypotension [Unknown]
  - Haemoptysis [Unknown]
  - Septic shock [Unknown]
  - Dyspnoea [Unknown]
  - Dizziness [Unknown]
